FAERS Safety Report 17550782 (Version 1)
Quarter: 2020Q1

REPORT INFORMATION
  Report Type: Spontaneous
  Country: CH (occurrence: CH)
  Receive Date: 20200317
  Receipt Date: 20200317
  Transmission Date: 20200409
  Serious: Yes (Hospitalization)
  Sender: FDA-Public Use
  Company Number: CH-TEVA-2020-CH-1202601

PATIENT
  Age: 67 Year
  Sex: Male
  Weight: 90 kg

DRUGS (6)
  1. IRFEN [Suspect]
     Active Substance: IBUPROFEN
     Dates: start: 20200207, end: 20200220
  2. ATORVASTATIN [Suspect]
     Active Substance: ATORVASTATIN
     Dates: end: 20200221
  3. EXFORGE HCT [Suspect]
     Active Substance: AMLODIPINE BESYLATE\HYDROCHLOROTHIAZIDE\VALSARTAN
     Dates: end: 20200221
  4. NOVALGIN (METAMIZOLE SODIUM) [Suspect]
     Active Substance: METAMIZOLE SODIUM
     Dates: start: 20200207, end: 20200220
  5. VALSARTANUM [Suspect]
     Active Substance: VALSARTAN
     Dates: end: 20200221
  6. DAFALGAN [Suspect]
     Active Substance: ACETAMINOPHEN
     Dates: start: 20200207, end: 20200220

REACTIONS (2)
  - Syncope [Recovered/Resolved]
  - Agranulocytosis [Recovering/Resolving]

NARRATIVE: CASE EVENT DATE: 20200220
